FAERS Safety Report 8905945 (Version 1)
Quarter: 2012Q4

REPORT INFORMATION
  Report Type: 
  Country: BR (occurrence: BR)
  Receive Date: 20121111
  Receipt Date: 20121111
  Transmission Date: 20130627
  Serious: Yes (Other)
  Sender: FDA-Public Use
  Company Number: PHHY2012BR102574

PATIENT
  Sex: Female
  Weight: 59.9 kg

DRUGS (17)
  1. CATAFLAM [Suspect]
  2. DIPIRONE [Concomitant]
  3. AAS [Concomitant]
  4. PLASIL [Concomitant]
  5. DRAMIN [Concomitant]
  6. PYRAZOLONE [Concomitant]
  7. OXICAM [Concomitant]
  8. SONRISAL [Concomitant]
  9. NISULID [Concomitant]
  10. DICLOFENAC [Concomitant]
  11. IBUPROFEN [Concomitant]
  12. DIGESAN [Concomitant]
  13. ORMIGREIN [Concomitant]
  14. INDOLEACETIC [Concomitant]
  15. CALADIUM [Concomitant]
  16. TARTRAZINE [Concomitant]
  17. CHAMPIX [Concomitant]
     Indication: SMOKING CESSATION THERAPY
     Dosage: 2 DFper day (2 tablet a day)
     Route: 048
     Dates: start: 201207, end: 20121013

REACTIONS (10)
  - Benign hydatidiform mole [Recovered/Resolved]
  - Anal fistula [Not Recovered/Not Resolved]
  - Bipolar disorder [Not Recovered/Not Resolved]
  - Blood cholesterol increased [Not Recovered/Not Resolved]
  - Low density lipoprotein increased [Not Recovered/Not Resolved]
  - Depression [Not Recovered/Not Resolved]
  - Depressed mood [Not Recovered/Not Resolved]
  - Hypersensitivity [Not Recovered/Not Resolved]
  - Nausea [Not Recovered/Not Resolved]
  - Exposure during pregnancy [Unknown]
